FAERS Safety Report 21226205 (Version 2)
Quarter: 2022Q3

REPORT INFORMATION
  Report Type: Spontaneous
  Country: US (occurrence: US)
  Receive Date: 20220818
  Receipt Date: 20220822
  Transmission Date: 20221027
  Serious: Yes (Hospitalization, Congenital Anomaly)
  Sender: FDA-Public Use
  Company Number: US-SAMSUNG BIOEPIS-SB-2022-20577

PATIENT
  Sex: Male

DRUGS (3)
  1. INFLIXIMAB [Suspect]
     Active Substance: INFLIXIMAB
     Indication: Colitis ulcerative
     Dosage: UNTIL 28 WEEKS OF GESTATION AND RESUMED ON POSTPARTUM DAY ONE
     Route: 064
  2. METHYLPREDNISOLONE [Concomitant]
     Active Substance: METHYLPREDNISOLONE
     Indication: Colitis ulcerative
     Dosage: HIGH-DOSE UNKNOWN
     Route: 064
  3. METHYLPREDNISOLONE [Concomitant]
     Active Substance: METHYLPREDNISOLONE
     Dosage: TAPER UNKNOWN
     Route: 064

REACTIONS (2)
  - Glycogen storage disease type II [Recovering/Resolving]
  - Mechanical ventilation [Recovered/Resolved]
